FAERS Safety Report 8891318 (Version 1)
Quarter: 2012Q4

REPORT INFORMATION
  Report Type: Spontaneous
  Country: US (occurrence: None)
  Receive Date: 20121105
  Receipt Date: 20121105
  Transmission Date: 20130627
  Serious: No
  Sender: FDA-Public Use
  Company Number: None

PATIENT
  Age: 54 Year
  Sex: Male
  Weight: 118.62 kg

DRUGS (1)
  1. PIOGLITAZONE 15MG AMYLIN PHARMACEUTICALS [Suspect]
     Indication: TYPE II DIABETES MELLITUS
     Dosage: 15mg 1 Tab QD Oral
     Route: 048
     Dates: start: 20120928, end: 20121005

REACTIONS (2)
  - Myalgia [None]
  - Toothache [None]
